FAERS Safety Report 5066364-3 (Version None)
Quarter: 2006Q3

REPORT INFORMATION
  Report Type: 
  Country: None (occurrence: None)
  Receive Date: 20060725
  Receipt Date: 20060714
  Transmission Date: 20061208
  Serious: Yes (Hospitalization)
  Sender: FDA-Public Use
  Company Number: US-2006-014620

PATIENT
  Age: 42 Year
  Sex: Female
  Weight: 46.7 kg

DRUGS (10)
  1. LEUKINE [Suspect]
     Indication: CROHN'S DISEASE
     Dosage: 1X/DAY, SUBCUTANEOUS
     Route: 058
     Dates: start: 20060426, end: 20060606
  2. LANSOPRAZOLE [Concomitant]
  3. ONDANSETRON [Concomitant]
  4. FENTANYL [Concomitant]
  5. HYOSCYAMINE (HYOSCYAMINE) [Concomitant]
  6. IBANDRONATE SODIUM (IBANDRONATE SODIUM) [Concomitant]
  7. NORCO (HYDROCODONE BITARTRATE) [Concomitant]
  8. ESTRADIOL INJ [Concomitant]
  9. PENTASA [Concomitant]
  10. RIFAXIMIN [Concomitant]

REACTIONS (12)
  - ABDOMINAL DISTENSION [None]
  - ABDOMINAL PAIN LOWER [None]
  - BLOOD POTASSIUM DECREASED [None]
  - HYPOTENSION [None]
  - PERINEAL ABSCESS [None]
  - PURULENCE [None]
  - PYREXIA [None]
  - RENAL FAILURE [None]
  - SENSATION OF PRESSURE [None]
  - SINUS BRADYCARDIA [None]
  - SUPRAPUBIC PAIN [None]
  - WHITE BLOOD CELL COUNT INCREASED [None]
